FAERS Safety Report 19888380 (Version 1)
Quarter: 2021Q3

REPORT INFORMATION
  Report Type: Spontaneous
  Country: US (occurrence: US)
  Receive Date: 20210927
  Receipt Date: 20210927
  Transmission Date: 20211014
  Serious: No
  Sender: FDA-Public Use
  Company Number: None

PATIENT
  Sex: Male

DRUGS (1)
  1. SUNITINIB CAP 50MG [Suspect]
     Active Substance: SUNITINIB
     Route: 048
     Dates: start: 20210916

REACTIONS (1)
  - Anaemia [None]
